FAERS Safety Report 5021367-X (Version None)
Quarter: 2006Q2

REPORT INFORMATION
  Report Type: 
  Country: None (occurrence: None)
  Receive Date: 20060608
  Receipt Date: 20060313
  Transmission Date: 20061013
  Serious: No
  Sender: FDA-Public Use
  Company Number: US-BRISTOL-MYERS SQUIBB COMPANY-13312442

PATIENT
  Sex: Female

DRUGS (2)
  1. SINEMET [Suspect]
     Dates: start: 19960101
  2. AFLEXA [Interacting]
     Dates: start: 20040101, end: 20040101

REACTIONS (4)
  - DRUG INTERACTION [None]
  - HAIR TEXTURE ABNORMAL [None]
  - POOR QUALITY DRUG ADMINISTERED [None]
  - PRURITUS [None]
